FAERS Safety Report 7861500-5 (Version None)
Quarter: 2011Q4

REPORT INFORMATION
  Report Type: 
  Country: None (occurrence: None)
  Receive Date: 20111027
  Receipt Date: 20111020
  Transmission Date: 20120403
  Serious: Yes (Hospitalization)
  Sender: FDA-Public Use
  Company Number: JP-PFIZER INC-2011231464

PATIENT
  Age: 73 Year
  Sex: Female
  Weight: 32.5 kg

DRUGS (14)
  1. CLARITHROMYCIN [Concomitant]
     Indication: MYCOBACTERIUM AVIUM COMPLEX INFECTION
     Dosage: 600 MG, 1X/DAY
     Route: 048
  2. FAMOTIDINE [Concomitant]
     Dosage: 10 MG, 2X/DAY
     Route: 048
  3. TRANEXAMIC ACID [Concomitant]
     Dosage: 250 MG, 3X/DAY
     Route: 048
  4. RIFABUTIN [Suspect]
     Indication: MYCOBACTERIUM AVIUM COMPLEX INFECTION
     Dosage: 150 MG ONCE DAILY
     Route: 048
     Dates: start: 20091015, end: 20091021
  5. STREPTOMYCIN SULFATE [Concomitant]
     Indication: MYCOBACTERIUM AVIUM COMPLEX INFECTION
     Dosage: 500 MG, 1X/DAY
     Route: 041
  6. MUCOSOLVAN [Concomitant]
     Indication: MYCOBACTERIUM AVIUM COMPLEX INFECTION
     Dosage: 45 MG, 1X/DAY
     Route: 048
  7. LAC B [Concomitant]
     Dosage: 1 G, 3X/DAY
     Route: 048
  8. ETODOLAC [Concomitant]
     Dosage: 200 MG, 2X/DAY
     Route: 048
  9. ADONA [Concomitant]
     Dosage: 30 MG, 3X/DAY
     Route: 048
  10. CIPROFLOXACIN HCL [Concomitant]
     Indication: MYCOBACTERIUM AVIUM COMPLEX INFECTION
     Dosage: 200 MG, 2X/DAY
     Route: 048
  11. CODEINE PHOSPHATE [Concomitant]
     Indication: MYCOBACTERIUM AVIUM COMPLEX INFECTION
     Dosage: 2 G, 1X/DAY
     Route: 048
  12. EBASTINE [Concomitant]
     Dosage: 10 MG, 1X/DAY
     Route: 048
  13. AZUCURENIN S [Concomitant]
     Dosage: UNK
     Route: 048
  14. RIFABUTIN [Suspect]
     Dosage: 300 MG, 1X/DAY
     Route: 048
     Dates: start: 20091022, end: 20091026

REACTIONS (1)
  - CHOLESTASIS [None]
